FAERS Safety Report 6638442-6 (Version None)
Quarter: 2010Q1

REPORT INFORMATION
  Report Type: 
  Country: None (occurrence: None)
  Receive Date: 20100301
  Receipt Date: 20090507
  Transmission Date: 20100710
  Serious: Yes (Death)
  Sender: FDA-Public Use
  Company Number: RB-15222-2009

PATIENT
  Age: 42 Year
  Sex: Male

DRUGS (1)
  1. SUBOXONE [Suspect]
     Indication: DRUG DEPENDENCE
     Dosage: 4 MG SUBLINGUAL
     Route: 060
     Dates: start: 20090101, end: 20090101

REACTIONS (1)
  - ROAD TRAFFIC ACCIDENT [None]
